FAERS Safety Report 5241421-7 (Version None)
Quarter: 2007Q1

REPORT INFORMATION
  Report Type: 
  Country: None (occurrence: None)
  Receive Date: 20070212
  Receipt Date: 20070212
  Transmission Date: 20070707
  Serious: Yes (Disabling)
  Sender: FDA-Public Use
  Company Number: None

PATIENT
  Age: 49 Year
  Sex: Male
  Weight: 77.1 kg

DRUGS (2)
  1. DAPTOMYCIN [Suspect]
     Indication: INTESTINAL OBSTRUCTION
     Dosage: 6MG/KG
     Dates: start: 20070117, end: 20070131
  2. DAPTOMYCIN [Suspect]
     Indication: OSTEOMYELITIS
     Dosage: 6MG/KG
     Dates: start: 20070117, end: 20070131

REACTIONS (4)
  - BLOOD CREATINE PHOSPHOKINASE INCREASED [None]
  - GASTROINTESTINAL DISORDER [None]
  - INTESTINAL PERFORATION [None]
  - STRANGULATED HERNIA REPAIR [None]
